FAERS Safety Report 10907088 (Version 1)
Quarter: 2015Q1

REPORT INFORMATION
  Report Type: Spontaneous
  Country: US (occurrence: None)
  Receive Date: 20150309
  Receipt Date: 20150309
  Transmission Date: 20150721
  Serious: Yes (Other)
  Sender: FDA-Public Use
  Company Number: None

PATIENT
  Age: 66 Year
  Sex: Female
  Weight: 108.86 kg

DRUGS (19)
  1. LOPID [Suspect]
     Active Substance: GEMFIBROZIL
     Indication: BLOOD TRIGLYCERIDES INCREASED
     Route: 048
     Dates: start: 20140903, end: 20140907
  2. MG+ [Concomitant]
  3. DUONEB [Concomitant]
     Active Substance: ALBUTEROL SULFATE\IPRATROPIUM BROMIDE
  4. DIGOXIN. [Concomitant]
     Active Substance: DIGOXIN
  5. GLUCOMETER [Concomitant]
  6. LEVEMIR [Concomitant]
     Active Substance: INSULIN DETEMIR
  7. VICODIN [Concomitant]
     Active Substance: ACETAMINOPHEN\HYDROCODONE BITARTRATE
  8. IN-HOME NEBULIZER [Concomitant]
  9. METFORMIN [Concomitant]
     Active Substance: METFORMIN HYDROCHLORIDE
  10. LOPID [Suspect]
     Active Substance: GEMFIBROZIL
     Indication: PANCREATITIS
     Route: 048
     Dates: start: 20140903, end: 20140907
  11. LISINOPRIL. [Concomitant]
     Active Substance: LISINOPRIL
  12. IBUPROFEN. [Concomitant]
     Active Substance: IBUPROFEN
  13. LOPID [Suspect]
     Active Substance: GEMFIBROZIL
     Indication: PROPHYLAXIS
     Route: 048
     Dates: start: 20140903, end: 20140907
  14. METFORMIN [Concomitant]
     Active Substance: METFORMIN HYDROCHLORIDE
  15. REGULAR INSULIN, SLIDING SCALE [Concomitant]
  16. CARVEDILOL. [Concomitant]
     Active Substance: CARVEDILOL
  17. FUROSEMIDE. [Concomitant]
     Active Substance: FUROSEMIDE
  18. KCL ER [Concomitant]
  19. ALBUTEROL. [Concomitant]
     Active Substance: ALBUTEROL

REACTIONS (2)
  - Muscle spasms [None]
  - Blood glucose increased [None]

NARRATIVE: CASE EVENT DATE: 20020905
